FAERS Safety Report 6161000-7 (Version None)
Quarter: 2009Q2

REPORT INFORMATION
  Report Type: 
  Country: None (occurrence: None)
  Receive Date: 20090420
  Receipt Date: 20090419
  Transmission Date: 20091009
  Serious: Yes (Hospitalization, Other)
  Sender: FDA-Public Use
  Company Number: US-PFIZER INC-2008016251

PATIENT
  Sex: Female
  Weight: 81.65 kg

DRUGS (18)
  1. CHANTIX [Suspect]
     Dates: start: 20080201, end: 20080401
  2. LIPITOR [Suspect]
     Indication: BLOOD CHOLESTEROL ABNORMAL
     Dosage: 40MG DAY
     Dates: start: 20080101
  3. PULMICORT-100 [Concomitant]
     Dosage: UNK
  4. DUONEB [Concomitant]
     Dosage: UNK
  5. OXYGEN [Concomitant]
     Dosage: 24 HOURS A DAY
  6. CARDIZEM [Concomitant]
     Indication: CARDIOVASCULAR DISORDER
     Dosage: 120 MG, UNK
  7. IMDUR [Concomitant]
     Indication: CARDIOVASCULAR DISORDER
     Dosage: 60 MG, UNK
  8. EFFEXOR XR [Concomitant]
     Indication: DEPRESSION
     Dosage: 75 MG, UNK
  9. PROZAC [Concomitant]
     Indication: DEPRESSION
     Dosage: 40 MG, UNK
  10. NEXIUM [Concomitant]
     Indication: GASTROINTESTINAL DISORDER
     Dosage: 40MG/2 CAPSULES DAY
  11. XANAX [Concomitant]
     Indication: ANXIETY
     Dosage: 2 MG, 3X/DAY
  12. TRAZODONE [Concomitant]
     Dosage: 100 MG, 1X/DAY
  13. NEURONTIN [Concomitant]
     Indication: HEADACHE
     Dosage: 1500 MG, UNK
  14. FLEXERIL [Concomitant]
     Indication: RHEUMATOID ARTHRITIS
     Dosage: 10 MG, 3X/DAY
  15. LORTAB [Concomitant]
     Indication: RHEUMATOID ARTHRITIS
     Dosage: UNK
  16. MUCINEX [Concomitant]
     Dosage: UNK
  17. PREDNISONE [Concomitant]
     Dosage: 20 MG, DAY
  18. PROVENTIL GENTLEHALER [Concomitant]
     Dosage: UNK

REACTIONS (3)
  - CHRONIC OBSTRUCTIVE PULMONARY DISEASE [None]
  - HALLUCINATION [None]
  - PNEUMONIA [None]
